FAERS Safety Report 9816631 (Version 1)
Quarter: 2014Q1

REPORT INFORMATION
  Report Type: Spontaneous
  Country: IE (occurrence: IE)
  Receive Date: 20140114
  Receipt Date: 20140114
  Transmission Date: 20141002
  Serious: Yes (Hospitalization)
  Sender: FDA-Public Use
  Company Number: US-ASTRAZENECA-2014SE02323

PATIENT
  Age: 385 Day
  Sex: Female

DRUGS (4)
  1. SYNAGIS [Suspect]
     Indication: HEART DISEASE CONGENITAL
     Dosage: 100 MG VIAL, 15 MG/KG, MONTHLY
     Route: 030
     Dates: start: 20131007
  2. SYNAGIS [Suspect]
     Indication: TRISOMY 21
     Dosage: 100 MG VIAL, 15 MG/KG, MONTHLY
     Route: 030
     Dates: start: 20131007
  3. SYNAGIS [Suspect]
     Indication: HEART DISEASE CONGENITAL
     Dosage: 50 MG VIAL, 15 MG/KG, MONTHLY
     Route: 030
     Dates: start: 20131007
  4. SYNAGIS [Suspect]
     Indication: TRISOMY 21
     Dosage: 50 MG VIAL, 15 MG/KG, MONTHLY
     Route: 030
     Dates: start: 20131007

REACTIONS (3)
  - Cough [Recovered/Resolved with Sequelae]
  - Wheezing [Recovered/Resolved with Sequelae]
  - Vomiting [Recovered/Resolved with Sequelae]
